FAERS Safety Report 6539168-X (Version None)
Quarter: 2010Q1

REPORT INFORMATION
  Report Type: 
  Country: None (occurrence: None)
  Receive Date: 20100115
  Receipt Date: 20100111
  Transmission Date: 20100710
  Serious: Yes (Hospitalization)
  Sender: FDA-Public Use
  Company Number: SE-BAYER-200937741GPV

PATIENT
  Age: 75 Year
  Sex: Female
  Weight: 54 kg

DRUGS (6)
  1. NEXAVAR [Suspect]
     Indication: HEPATIC NEOPLASM MALIGNANT
     Dosage: TOTAL DAILY DOSE: 800 MG
     Route: 048
     Dates: start: 20091022, end: 20091027
  2. NEXAVAR [Suspect]
     Route: 048
     Dates: start: 20091029, end: 20091101
  3. ANDAPSIN [Concomitant]
     Indication: DYSPEPSIA
     Route: 048
     Dates: start: 20090908
  4. FURADANTIN [Concomitant]
     Indication: INFECTION
     Route: 048
     Dates: start: 20091029, end: 20091103
  5. OMEPRAZOL [Concomitant]
     Route: 048
     Dates: start: 19840101
  6. PLENDIL [Concomitant]
     Route: 048
     Dates: start: 20091028, end: 20091101

REACTIONS (2)
  - ACUTE MYOCARDIAL INFARCTION [None]
  - ARRHYTHMIA [None]
